FAERS Safety Report 4470510-X (Version None)
Quarter: 2004Q4

REPORT INFORMATION
  Report Type: 
  Country: None (occurrence: None)
  Receive Date: 20041005
  Receipt Date: 20040922
  Transmission Date: 20050328
  Serious: Yes (Other)
  Sender: FDA-Public Use
  Company Number: 2004069802

PATIENT
  Age: 70 Year
  Sex: Female
  Weight: 65.318 kg

DRUGS (3)
  1. ROGAINE [Suspect]
     Indication: ALOPECIA
     Dosage: SMALL AMT, 3-4 X WEEKLY, TOPICAL
     Route: 061
     Dates: start: 19990101
  2. BIOTIN [Suspect]
     Indication: VITAMIN SUPPLEMENTATION
     Dosage: 600 MCG, QD, ORAL
     Route: 048
     Dates: start: 20030101
  3. MULTIVITAMINS (ASCORBIC ACID/ERGOCALCIFEROL/FOLIC ACID/NICOTINAMIDE/PA [Concomitant]

REACTIONS (1)
  - BREAST CANCER [None]
